FAERS Safety Report 14999492 (Version 1)
Quarter: 2018Q2

REPORT INFORMATION
  Report Type: Spontaneous
  Country: AT (occurrence: AT)
  Receive Date: 20180612
  Receipt Date: 20180612
  Transmission Date: 20180711
  Serious: Yes (Death)
  Sender: FDA-Public Use
  Company Number: AT-ACCORD-068182

PATIENT
  Age: 84 Year
  Sex: Male

DRUGS (2)
  1. MEVIR [Interacting]
     Active Substance: BRIVUDINE
     Indication: HERPES ZOSTER
     Dates: start: 2016, end: 2016
  2. CAPECITABINE. [Suspect]
     Active Substance: CAPECITABINE
     Indication: PRODUCT USED FOR UNKNOWN INDICATION

REACTIONS (1)
  - Labelled drug-drug interaction medication error [Fatal]

NARRATIVE: CASE EVENT DATE: 2016
